FAERS Safety Report 15366706 (Version 1)
Quarter: 2018Q3

REPORT INFORMATION
  Report Type: Spontaneous
  Country: US (occurrence: US)
  Receive Date: 20180901
  Receipt Date: 20180901
  Transmission Date: 20181010
  Serious: Yes (Hospitalization, Other)
  Sender: FDA-Public Use
  Company Number: None

PATIENT
  Age: 55 Year
  Sex: Male
  Weight: 89.9 kg

DRUGS (23)
  1. SYMBICORT 160/4.5; 2 BID [Concomitant]
     Dates: start: 20180430
  2. DESIPRAMINE 250MG DAILY [Concomitant]
     Dates: start: 20180327
  3. SIMVASTATIN 40MG DAILY [Concomitant]
     Dates: start: 20171117
  4. PEMBROLIZUMAB 200MG [Concomitant]
     Active Substance: PEMBROLIZUMAB
  5. NICOTINE 7MG PATCH [Concomitant]
     Dates: start: 20180629
  6. ALFUZOSIN 10MG DAILY [Concomitant]
     Dates: start: 20180327
  7. DEXAMETHASONE 4MG WITH CHEMO [Concomitant]
     Dates: start: 20180420
  8. FOLIC ACID 1MG [Concomitant]
     Dates: start: 20180420
  9. METFORMIN 500MG BID [Concomitant]
     Dates: start: 20180518
  10. DOCUSATE 100MG BID [Concomitant]
     Dates: start: 20180518
  11. ONDANSETRON 4MG PRN [Concomitant]
  12. CARBOPLATIN (AUC=5) [Concomitant]
  13. PEMETREXED 500MG [Concomitant]
  14. PEMBROLIZUMAB. [Suspect]
     Active Substance: PEMBROLIZUMAB
     Indication: NON-SMALL CELL LUNG CANCER METASTATIC
     Route: 042
     Dates: start: 20180518
  15. PEMBROLIZUMAB. [Suspect]
     Active Substance: PEMBROLIZUMAB
     Indication: METASTASES TO CENTRAL NERVOUS SYSTEM
     Route: 042
     Dates: start: 20180518
  16. TRAZODONE 300MG DAILY [Concomitant]
     Dates: start: 20170524
  17. PROCHLORPERAZINE 10MG PRN [Concomitant]
  18. METOPROLOL TARTRATE 25MG BID [Concomitant]
     Dates: start: 20170630
  19. LISINOPRIL 5MG DIALY [Concomitant]
     Dates: start: 20170524
  20. PANTOPRAZOLE 40MG BID [Concomitant]
     Dates: start: 20180220
  21. HYDROCODONE/APAP 5/325MG [Concomitant]
     Dates: start: 20180720
  22. GABAPENTIN 100MG TID [Concomitant]
     Dates: start: 20180104
  23. IBUPROFEN 800MG TID [Concomitant]
     Dates: start: 20180616

REACTIONS (9)
  - Pneumonia [None]
  - Blood bilirubin decreased [None]
  - Sepsis [None]
  - Pyrexia [None]
  - Aspartate aminotransferase increased [None]
  - Autoimmune hepatitis [None]
  - Serotonin syndrome [None]
  - Neutropenia [None]
  - Alanine aminotransferase increased [None]

NARRATIVE: CASE EVENT DATE: 20180731
